FAERS Safety Report 4493442-X (Version None)
Quarter: 2004Q4

REPORT INFORMATION
  Report Type: 
  Country: None (occurrence: None)
  Receive Date: 20041104
  Receipt Date: 20041025
  Transmission Date: 20050328
  Serious: Yes (Hospitalization)
  Sender: FDA-Public Use
  Company Number: IL-MERCK-0410ISR00042

PATIENT
  Age: 44 Year
  Sex: Male

DRUGS (2)
  1. VIOXX [Suspect]
     Indication: INTERVERTEBRAL DISC DISPLACEMENT
     Route: 048
     Dates: start: 19990101, end: 20020101
  2. ETODOLAC [Concomitant]
     Indication: INTERVERTEBRAL DISC DISPLACEMENT
     Route: 048

REACTIONS (6)
  - ADVERSE EVENT [None]
  - BALANCE DISORDER [None]
  - CHEST DISCOMFORT [None]
  - DYSKINESIA [None]
  - LOSS OF CONSCIOUSNESS [None]
  - SPEECH DISORDER [None]
